FAERS Safety Report 10567756 (Version 1)
Quarter: 2014Q4

REPORT INFORMATION
  Report Type: Spontaneous
  Country: DE (occurrence: DE)
  Receive Date: 20141106
  Receipt Date: 20141106
  Transmission Date: 20150529
  Serious: Yes (Other)
  Sender: FDA-Public Use
  Company Number: DE-SUN PHARMACEUTICAL INDUSTRIES LTD-2014SUN02532

PATIENT
  Age: 79 Year
  Sex: Male
  Weight: 70 kg

DRUGS (1)
  1. GEMCITABINE SUN 200 MG PULVER ZUR HERSTELLUNG EINER INFUSIONSL?SUNG [Suspect]
     Active Substance: GEMCITABINE HYDROCHLORIDE
     Indication: PLEURAL MESOTHELIOMA
     Dosage: CYCLIC, 1000 MG/M2, INFUSION DURATION + VOLUME: 30 MINS/250 ML RESP.
     Route: 042
     Dates: start: 20130904

REACTIONS (2)
  - Toxic epidermal necrolysis [Unknown]
  - Nausea [Unknown]

NARRATIVE: CASE EVENT DATE: 20130904
